FAERS Safety Report 8461468-7 (Version None)
Quarter: 2012Q2

REPORT INFORMATION
  Report Type: 
  Country: None (occurrence: None)
  Receive Date: 20120625
  Receipt Date: 20120620
  Transmission Date: 20120825
  Serious: Yes (Other)
  Sender: FDA-Public Use
  Company Number: US-BAYER-2012-062004

PATIENT
  Age: 57 Year
  Sex: Female

DRUGS (3)
  1. BETASERON [Suspect]
     Dosage: 0.187 MG, QOD
     Route: 058
     Dates: end: 20120616
  2. BETASERON [Suspect]
     Dosage: 0.125 MG, QOD
     Route: 058
  3. BETASERON [Suspect]
     Indication: MULTIPLE SCLEROSIS
     Dosage: 0.062 MG, QOD
     Route: 058
     Dates: start: 20120601

REACTIONS (3)
  - MOBILITY DECREASED [None]
  - PYREXIA [None]
  - DIARRHOEA [None]
